FAERS Safety Report 7592925-3 (Version None)
Quarter: 2011Q2

REPORT INFORMATION
  Report Type: 
  Country: None (occurrence: None)
  Receive Date: 20110628
  Receipt Date: 20110615
  Transmission Date: 20111010
  Serious: Yes (Hospitalization)
  Sender: FDA-Public Use
  Company Number: 2011MA007841

PATIENT
  Age: 76 Year
  Sex: Male

DRUGS (7)
  1. S [Suspect]
  2. DICLOFENAC SODIUM [Suspect]
  3. TEMAZEPAM [Suspect]
     Indication: INSOMNIA
     Dosage: 20 MG;PRN;PO
     Route: 048
  4. LANSOPRAZOLE [Suspect]
  5. CLOZARIL [Suspect]
     Indication: SCHIZOPHRENIA
     Dosage: 100 MG;QD;PO
     Route: 048
  6. OMEPRAZOLE [Concomitant]
  7. SENNA (SENNA ALEXANDRIA) [Suspect]
     Indication: CONSTIPATION

REACTIONS (4)
  - ACCIDENTAL OVERDOSE [None]
  - POSTURE ABNORMAL [None]
  - SEDATION [None]
  - CONFUSIONAL STATE [None]
